FAERS Safety Report 15551245 (Version 2)
Quarter: 2022Q3

REPORT INFORMATION
  Report Type: Spontaneous
  Country: BR (occurrence: BR)
  Receive Date: 20181025
  Receipt Date: 20220923
  Transmission Date: 20221026
  Serious: Yes (Other)
  Sender: FDA-Public Use
  Company Number: BR-PFIZER INC-2018432770

PATIENT
  Age: 67 Year
  Sex: Female
  Weight: 50 kg

DRUGS (3)
  1. LIPITOR [Suspect]
     Active Substance: ATORVASTATIN CALCIUM
     Indication: Blood cholesterol abnormal
     Dosage: UNK
  2. LIPITOR [Suspect]
     Active Substance: ATORVASTATIN CALCIUM
     Indication: Dyslipidaemia
     Dosage: 20 MG, DAILY (1 TABLET)
     Route: 048
     Dates: end: 202206
  3. LIPITOR [Suspect]
     Active Substance: ATORVASTATIN CALCIUM
     Dosage: EVERY OTHER MONTH

REACTIONS (5)
  - Infarction [Unknown]
  - Blood pressure decreased [Unknown]
  - Blood pressure increased [Unknown]
  - Insomnia [Unknown]
  - Intentional product misuse [Unknown]

NARRATIVE: CASE EVENT DATE: 20180901
